FAERS Safety Report 23707119 (Version 2)
Quarter: 2024Q2

REPORT INFORMATION
  Report Type: Report from Study
  Country: US (occurrence: US)
  Receive Date: 20240404
  Receipt Date: 20240424
  Transmission Date: 20240716
  Serious: Yes (Other)
  Sender: FDA-Public Use
  Company Number: US-ABBVIE-5704391

PATIENT
  Sex: Male

DRUGS (2)
  1. IMBRUVICA [Suspect]
     Active Substance: IBRUTINIB
     Indication: Lymphocytic leukaemia
     Route: 048
     Dates: start: 201808
  2. IMBRUVICA [Suspect]
     Active Substance: IBRUTINIB
     Indication: Lymphocytic leukaemia
     Route: 048

REACTIONS (1)
  - Medical procedure [Unknown]
